FAERS Safety Report 8558540-X (Version None)
Quarter: 2012Q3

REPORT INFORMATION
  Report Type: 
  Country: None (occurrence: None)
  Receive Date: 20120801
  Receipt Date: 20090809
  Transmission Date: 20120928
  Serious: Yes (Other)
  Sender: FDA-Public Use
  Company Number: CO-PFIZER INC-2012185705

PATIENT
  Age: 75 Year
  Sex: Female

DRUGS (5)
  1. LOSARTAN [Concomitant]
     Dosage: 50 MG, 1X/DAY
  2. ACETYLSALICYLIC ACID [Concomitant]
     Dosage: 100 MG, 1X/DAY
  3. GLIBENCLAMIDE [Concomitant]
     Dosage: 5 MG, 1X/DAY
  4. ISOSORBIDE DINITRATE [Concomitant]
     Dosage: 10 MG, 2X/DAY
  5. LIPITOR [Suspect]
     Indication: DYSLIPIDAEMIA
     Dosage: 10 MG, 1X/DAY

REACTIONS (4)
  - CHEST PAIN [None]
  - TOBACCO ABUSE [None]
  - PYURIA [None]
  - DYSPNOEA [None]
